FAERS Safety Report 7950787-6 (Version None)
Quarter: 2011Q4

REPORT INFORMATION
  Report Type: 
  Country: None (occurrence: None)
  Receive Date: 20111201
  Receipt Date: 20111128
  Transmission Date: 20120403
  Serious: No
  Sender: FDA-Public Use
  Company Number: US-PFIZER INC-2011290080

PATIENT
  Sex: Female
  Weight: 53.061 kg

DRUGS (3)
  1. ZANTAC [Concomitant]
     Dosage: UNK
  2. CELEBREX [Suspect]
     Indication: ARTHRITIS
     Dosage: 200 MG, 1X/DAY
     Route: 048
     Dates: start: 20111118
  3. INSULIN [Concomitant]
     Indication: DIABETES MELLITUS
     Dosage: UNK

REACTIONS (2)
  - PAIN [None]
  - BLOOD GLUCOSE INCREASED [None]
